FAERS Safety Report 6374766-8 (Version None)
Quarter: 2009Q3

REPORT INFORMATION
  Report Type: 
  Country: None (occurrence: None)
  Receive Date: 20090924
  Receipt Date: 20090916
  Transmission Date: 20100115
  Serious: Yes (Other)
  Sender: FDA-Public Use
  Company Number: PHHY2009DE31703

PATIENT
  Sex: Female

DRUGS (1)
  1. ELIDEL [Suspect]
     Indication: DERMATITIS ATOPIC
     Dosage: UNK
     Route: 061
     Dates: end: 20090101

REACTIONS (4)
  - HERPES VIRUS INFECTION [None]
  - PHOTOSENSITIVITY REACTION [None]
  - RASH [None]
  - RASH PUSTULAR [None]
